FAERS Safety Report 4855639-6 (Version None)
Quarter: 2005Q4

REPORT INFORMATION
  Report Type: 
  Country: None (occurrence: None)
  Receive Date: 20051216
  Receipt Date: 20051205
  Transmission Date: 20060501
  Serious: Yes (Hospitalization)
  Sender: FDA-Public Use
  Company Number: FR-JNJFOC-20051201704

PATIENT
  Age: 31 Year
  Sex: Female

DRUGS (2)
  1. REMICADE [Suspect]
     Indication: CROHN'S DISEASE
     Route: 042
  2. METHOTREXATE [Concomitant]
     Dosage: 15-20MG
     Route: 030
     Dates: start: 20050315

REACTIONS (4)
  - DEMYELINATION [None]
  - DYSARTHRIA [None]
  - NEUROLOGICAL SYMPTOM [None]
  - TREMOR [None]
